FAERS Safety Report 16174851 (Version 1)
Quarter: 2019Q2

REPORT INFORMATION
  Report Type: Spontaneous
  Country: FI (occurrence: FI)
  Receive Date: 20190409
  Receipt Date: 20190409
  Transmission Date: 20190711
  Serious: Yes (Life-Threatening)
  Sender: FDA-Public Use
  Company Number: FI-AMREGENT-20190630

PATIENT
  Age: 69 Year
  Sex: Male

DRUGS (1)
  1. FERINJECT [Suspect]
     Active Substance: FERRIC CARBOXYMALTOSE
     Dosage: 1000 MG, 1 IN 1 D
     Route: 042
     Dates: start: 20190312, end: 20190312

REACTIONS (5)
  - Pallor [Unknown]
  - Malaise [Unknown]
  - Asthenia [Unknown]
  - Hyperhidrosis [Unknown]
  - Blood pressure decreased [Unknown]

NARRATIVE: CASE EVENT DATE: 20190312
